FAERS Safety Report 8023203-6 (Version None)
Quarter: 2012Q1

REPORT INFORMATION
  Report Type: 
  Country: None (occurrence: None)
  Receive Date: 20120104
  Receipt Date: 20111228
  Transmission Date: 20120608
  Serious: Yes (Other)
  Sender: FDA-Public Use
  Company Number: US-ELI_LILLY_AND_COMPANY-US201112007619

PATIENT
  Sex: Male

DRUGS (2)
  1. HUMATROPE [Suspect]
     Dosage: 1.37 MG, UNKNOWN
  2. HUMATROPE [Suspect]
     Indication: GROWTH RETARDATION
     Dosage: 0.135 MG, UNKNOWN
     Dates: start: 20081217, end: 20100601

REACTIONS (1)
  - BLADDER TRANSITIONAL CELL CARCINOMA [None]
